FAERS Safety Report 15515125 (Version 3)
Quarter: 2018Q4

REPORT INFORMATION
  Report Type: Report from Study
  Country: US (occurrence: US)
  Receive Date: 20181017
  Receipt Date: 20181119
  Transmission Date: 20190205
  Serious: Yes (Hospitalization, Other)
  Sender: FDA-Public Use
  Company Number: US-BRISTOL-MYERS SQUIBB COMPANY-BMS-2018-095380

PATIENT
  Age: 33 Year
  Sex: Male

DRUGS (2)
  1. NIVOLUMAB [Suspect]
     Active Substance: NIVOLUMAB
     Indication: SYNOVIAL SARCOMA
     Dosage: UNK
     Route: 065
     Dates: start: 20180920
  2. NKTR-214 [Suspect]
     Active Substance: BEMPEGALDESLEUKIN
     Indication: SYNOVIAL SARCOMA
     Dosage: UNK
     Route: 065
     Dates: start: 20180920

REACTIONS (5)
  - Pleural effusion [Unknown]
  - Pain [Unknown]
  - Haemothorax [Unknown]
  - Cardiac arrest [Unknown]
  - Vomiting [Unknown]

NARRATIVE: CASE EVENT DATE: 20181004
